FAERS Safety Report 20149375 (Version 1)
Quarter: 2021Q4

REPORT INFORMATION
  Report Type: Spontaneous
  Country: CN (occurrence: None)
  Receive Date: 20211205
  Receipt Date: 20211205
  Transmission Date: 20220304
  Serious: Yes (Other)
  Sender: FDA-Public Use
  Company Number: CN-ROCHE-2966232

PATIENT
  Age: 45 Year
  Sex: Male

DRUGS (9)
  1. AVASTIN [Suspect]
     Active Substance: BEVACIZUMAB
     Indication: Hepatic cancer
     Route: 042
     Dates: start: 20210430
  2. TECENTRIQ [Suspect]
     Active Substance: ATEZOLIZUMAB
     Indication: Hepatic cancer
     Route: 065
     Dates: start: 20210430
  3. ENTECAVIR [Concomitant]
     Active Substance: ENTECAVIR
     Indication: Hepatitis B
  4. EPIRUBICIN HYDROCHLORIDE [Concomitant]
     Active Substance: EPIRUBICIN HYDROCHLORIDE
     Indication: Hepatic cancer
     Dates: start: 20210421
  5. OXALIPLATIN [Concomitant]
     Active Substance: OXALIPLATIN
     Indication: Hepatic cancer
     Dosage: ON 16 JUN 2021, 09 JUL 2021, 11 AUG 2021, 30 SEP 2021
     Dates: start: 20210616
  6. OXALIPLATIN [Concomitant]
     Active Substance: OXALIPLATIN
     Dates: start: 20211110
  7. LEUCOVORIN CALCIUM [Concomitant]
     Active Substance: LEUCOVORIN CALCIUM
     Indication: Hepatic cancer
     Dosage: ON 16 JUN 2021, 09 JUL 2021, 11 AUG 2021, 30 SEP 2021
     Dates: start: 20210616
  8. FLUOROURACIL [Concomitant]
     Active Substance: FLUOROURACIL
     Indication: Hepatic cancer
     Dosage: ON 16 JUN 2021, 09 JUL 2021, 11 AUG 2021, 30 SEP 2021
     Dates: start: 20210616
  9. EPIRUBICIN [Concomitant]
     Active Substance: EPIRUBICIN
     Indication: Hepatic cancer
     Dates: start: 20211110

REACTIONS (3)
  - Chronic gastritis [Recovering/Resolving]
  - Gastric ulcer [Recovering/Resolving]
  - Duodenal ulcer [Recovering/Resolving]

NARRATIVE: CASE EVENT DATE: 20210901
